FAERS Safety Report 7009902-3 (Version None)
Quarter: 2010Q3

REPORT INFORMATION
  Report Type: 
  Country: None (occurrence: None)
  Receive Date: 20100923
  Receipt Date: 20100915
  Transmission Date: 20110219
  Serious: Yes (Other)
  Sender: FDA-Public Use
  Company Number: PHHY2010US37666

PATIENT
  Sex: Female

DRUGS (1)
  1. SANDOSTATIN LAR [Suspect]
     Indication: CARCINOID SYNDROME
     Dosage: UNK

REACTIONS (6)
  - ABDOMINAL DISTENSION [None]
  - COLITIS [None]
  - DRY MOUTH [None]
  - GINGIVAL PAIN [None]
  - GINGIVAL RECESSION [None]
  - HYPOAESTHESIA [None]
